FAERS Safety Report 4722463-4 (Version None)
Quarter: 2005Q3

REPORT INFORMATION
  Report Type: 
  Country: None (occurrence: None)
  Receive Date: 20050722
  Receipt Date: 20050429
  Transmission Date: 20060218
  Serious: No
  Sender: FDA-Public Use
  Company Number: US-GLAXOSMITHKLINE-A0556328A

PATIENT
  Age: 55 Year
  Sex: Male

DRUGS (7)
  1. AVANDIA [Suspect]
     Dosage: 8MG PER DAY
     Route: 048
     Dates: start: 20041001
  2. METFORMIN [Concomitant]
  3. GLIPIZIDE [Concomitant]
  4. IBUPROFEN [Concomitant]
  5. COZAAR [Concomitant]
  6. SKELAXIN [Concomitant]
  7. ANDROGEL [Concomitant]

REACTIONS (2)
  - BLOOD GLUCOSE FLUCTUATION [None]
  - BLOOD TESTOSTERONE DECREASED [None]
